FAERS Safety Report 6689870-4 (Version None)
Quarter: 2010Q2

REPORT INFORMATION
  Report Type: 
  Country: None (occurrence: None)
  Receive Date: 20100421
  Receipt Date: 20100408
  Transmission Date: 20101027
  Serious: Yes (Hospitalization, Other)
  Sender: FDA-Public Use
  Company Number: DK-BAYER-201019973GPV

PATIENT
  Age: 15 Year
  Sex: Female

DRUGS (2)
  1. YASMIN [Suspect]
     Indication: ORAL CONTRACEPTION
     Route: 048
     Dates: start: 20061115, end: 20090930
  2. ALLERGY MEDICATION [Concomitant]
     Indication: SEASONAL ALLERGY
     Dates: start: 20070101

REACTIONS (8)
  - AFFECT LABILITY [None]
  - DEPRESSED MOOD [None]
  - EATING DISORDER [None]
  - HALLUCINATION, AUDITORY [None]
  - HALLUCINATION, VISUAL [None]
  - INTENTIONAL SELF-INJURY [None]
  - OBSESSIVE THOUGHTS [None]
  - SUICIDAL IDEATION [None]
